FAERS Safety Report 25331180 (Version 2)
Quarter: 2025Q2

REPORT INFORMATION
  Report Type: Spontaneous
  Country: US (occurrence: US)
  Receive Date: 20250519
  Receipt Date: 20250520
  Transmission Date: 20250717
  Serious: No
  Sender: PFIZER
  Company Number: US-PFIZER INC-202500103301

PATIENT
  Age: 38 Year
  Sex: Male

DRUGS (3)
  1. XELJANZ XR [Suspect]
     Active Substance: TOFACITINIB CITRATE
     Dosage: 1 DF, DAILY
     Dates: start: 20230104
  2. CYCLOBENZAPRINE [Concomitant]
     Active Substance: CYCLOBENZAPRINE
  3. ACCUTANE [Concomitant]
     Active Substance: ISOTRETINOIN

REACTIONS (1)
  - Infection [Recovered/Resolved]

NARRATIVE: CASE EVENT DATE: 20250424
